FAERS Safety Report 5473992-X (Version None)
Quarter: 2007Q3

REPORT INFORMATION
  Report Type: 
  Country: None (occurrence: None)
  Receive Date: 20070830
  Receipt Date: 20070509
  Transmission Date: 20080115
  Serious: Yes (Death, Life-Threatening, Other)
  Sender: FDA-Public Use
  Company Number: 239249

PATIENT
  Age: 60 Year
  Sex: Male

DRUGS (8)
  1. XOLAIR [Suspect]
     Indication: ASTHMA
     Dosage: 375 MG, Q2W
     Dates: start: 20031008
  2. FLONASE [Concomitant]
  3. MUTIVITAMIN (MULTIVITAMINS NOS) [Concomitant]
  4. GLUCOSAMINE (GLUCOSAMINE) [Concomitant]
  5. ALBUTEROL (ALBUTEROL/ ALBUTEROL SULFATE) [Concomitant]
  6. FORADIL [Concomitant]
  7. QVAR 40 [Concomitant]
  8. ZOCOR [Concomitant]

REACTIONS (2)
  - COLON CANCER [None]
  - HEPATIC NEOPLASM MALIGNANT [None]
